FAERS Safety Report 9448404 (Version 1)
Quarter: 2013Q3

REPORT INFORMATION
  Report Type: Spontaneous
  Country: PH (occurrence: PH)
  Receive Date: 20130808
  Receipt Date: 20130808
  Transmission Date: 20140515
  Serious: Yes (Life-Threatening, Hospitalization)
  Sender: FDA-Public Use
  Company Number: PH-SANOFI-AVENTIS-2013SA076113

PATIENT
  Age: 55 Year
  Sex: Female

DRUGS (10)
  1. THIAMAZOLE [Suspect]
     Indication: BASEDOW^S DISEASE
     Route: 065
  2. GLIMEPIRIDE [Suspect]
     Indication: DIABETES MELLITUS
     Route: 065
  3. DEXAMETHASONE [Suspect]
     Indication: HYPERTHYROIDISM
     Route: 042
  4. DILTIAZEM [Suspect]
     Indication: HYPERTHYROIDISM
     Route: 065
  5. TELMISARTAN [Concomitant]
     Indication: HYPERTENSION
  6. CARBIDOPA/LEVODOPA [Concomitant]
     Indication: PARKINSON^S DISEASE
  7. PIOGLITAZONE [Concomitant]
     Indication: DIABETES MELLITUS
  8. FLUTICASONE [Concomitant]
     Indication: ASTHMA
  9. HYDROCHLOROTHIAZIDE [Concomitant]
     Indication: HYPERTENSION
  10. SALMETEROL [Concomitant]
     Indication: ASTHMA

REACTIONS (11)
  - Aplastic anaemia [Recovering/Resolving]
  - Agranulocytosis [Recovering/Resolving]
  - Pancytopenia [Recovering/Resolving]
  - White blood cell count decreased [Recovering/Resolving]
  - Platelet count decreased [Recovering/Resolving]
  - Reticulocyte count abnormal [Recovering/Resolving]
  - Infection [Recovered/Resolved]
  - Pyrexia [Recovered/Resolved]
  - Oropharyngeal pain [Recovered/Resolved]
  - Infection [Recovered/Resolved]
  - Off label use [Unknown]
